FAERS Safety Report 13618968 (Version 1)
Quarter: 2017Q2

REPORT INFORMATION
  Report Type: Spontaneous
  Country: US (occurrence: US)
  Receive Date: 20170606
  Receipt Date: 20170606
  Transmission Date: 20170830
  Serious: Yes (Hospitalization)
  Sender: FDA-Public Use
  Company Number: None

PATIENT
  Age: 66 Year
  Sex: Male

DRUGS (16)
  1. VITAMIN D [Concomitant]
     Active Substance: CHOLECALCIFEROL
  2. REVATIO [Suspect]
     Active Substance: SILDENAFIL CITRATE
     Indication: PULMONARY ARTERIAL HYPERTENSION
     Dosage: 1 TAB (20MG) TID PO
     Route: 048
     Dates: start: 201412
  3. ATORVASTATIN [Concomitant]
     Active Substance: ATORVASTATIN
  4. REVATIO [Suspect]
     Active Substance: SILDENAFIL CITRATE
     Indication: COR PULMONALE
     Dosage: 1 TAB (20MG) TID PO
     Route: 048
     Dates: start: 201412
  5. OXYCD/APAP [Concomitant]
  6. TIMOLOL MAL [Concomitant]
  7. POLYET GLYC POW [Concomitant]
  8. LATANOPROST. [Concomitant]
     Active Substance: LATANOPROST
  9. PANTOPRAZOLE [Concomitant]
     Active Substance: PANTOPRAZOLE
  10. ELIQUIS [Concomitant]
     Active Substance: APIXABAN
  11. LEVOTHYROXIN [Concomitant]
     Active Substance: LEVOTHYROXINE
  12. BRIMONIDINE [Concomitant]
     Active Substance: BRIMONIDINE TARTRATE
  13. METOPROLOL TARTRATE. [Concomitant]
     Active Substance: METOPROLOL TARTRATE
  14. LIDOCAINE. [Concomitant]
     Active Substance: LIDOCAINE
  15. TRAVOPROST. [Concomitant]
     Active Substance: TRAVOPROST
  16. PARICALCITOL. [Concomitant]
     Active Substance: PARICALCITOL

REACTIONS (1)
  - Sepsis [None]

NARRATIVE: CASE EVENT DATE: 201703
